FAERS Safety Report 7472736-X (Version None)
Quarter: 2011Q2

REPORT INFORMATION
  Report Type: 
  Country: None (occurrence: None)
  Receive Date: 20110511
  Receipt Date: 20110503
  Transmission Date: 20111010
  Serious: Yes (Other)
  Sender: FDA-Public Use
  Company Number: FI-PFIZER INC-2011094529

PATIENT
  Age: 80 Year
  Sex: Male

DRUGS (14)
  1. TAMSULOSIN HCL [Suspect]
     Indication: URINARY INCONTINENCE
     Dosage: 400 MG, 1X/DAY
  2. CANDESARTAN CILEXETIL [Suspect]
     Indication: HYPERTENSION
     Dosage: 8 MG, 1X/DAY
  3. ISOSORBIDE MONONITRATE [Suspect]
     Indication: ANGINA PECTORIS
     Dosage: 20 MG, 2X/DAY
  4. TAMSULOSIN HCL [Suspect]
     Indication: URINARY RETENTION
     Dosage: UNK
  5. MEMANTINE [Suspect]
     Dosage: UNK
  6. ATORVASTATIN CALCIUM [Concomitant]
     Indication: HYPERCHOLESTEROLAEMIA
     Dosage: 20 MG, 1X/DAY
  7. ATORVASTATIN CALCIUM [Concomitant]
     Indication: METABOLIC SYNDROME
  8. DONEPEZIL HCL [Suspect]
     Indication: DEMENTIA ALZHEIMER'S TYPE
     Dosage: 5MG DAILY
  9. BISOPROLOL FUMARATE [Suspect]
     Indication: HYPERTENSION
     Dosage: 5MG + 2.5MG DAILY
  10. WARFARIN [Concomitant]
     Indication: ATRIAL FIBRILLATION
  11. TOLTERODINE TARTRATE [Suspect]
     Indication: URINARY RETENTION
  12. RIVASTIGMINE [Suspect]
     Indication: DEMENTIA ALZHEIMER'S TYPE
     Dosage: 4.6 MG DAILY
  13. DONEPEZIL HCL [Suspect]
     Dosage: 10MG DAILY
  14. TOLTERODINE TARTRATE [Suspect]
     Indication: URINARY INCONTINENCE
     Dosage: 4 MG, 1X/DAY

REACTIONS (7)
  - JEALOUS DELUSION [None]
  - ANTISOCIAL BEHAVIOUR [None]
  - FALL [None]
  - EXPRESSIVE LANGUAGE DISORDER [None]
  - AGGRESSION [None]
  - SLEEP PHASE RHYTHM DISTURBANCE [None]
  - MULTIPLE FRACTURES [None]
